FAERS Safety Report 13712668 (Version 1)
Quarter: 2017Q3

REPORT INFORMATION
  Report Type: Report from Study
  Country: CA (occurrence: CA)
  Receive Date: 20170703
  Receipt Date: 20170703
  Transmission Date: 20171127
  Serious: Yes (Hospitalization, Other)
  Sender: FDA-Public Use
  Company Number: CA-BAYER-2016-093229

PATIENT
  Age: 81 Year
  Sex: Male

DRUGS (1)
  1. NEXAVAR [Suspect]
     Active Substance: SORAFENIB
     Indication: HEPATOCELLULAR CARCINOMA
     Dosage: 400 MG, QD FOR 35 DAYS
     Route: 048
     Dates: start: 201511

REACTIONS (4)
  - Hospitalisation [Unknown]
  - Underdose [Not Recovered/Not Resolved]
  - Cerebrovascular accident [Recovering/Resolving]
  - Labile blood pressure [Recovering/Resolving]

NARRATIVE: CASE EVENT DATE: 20170620
